FAERS Safety Report 5058052-4 (Version None)
Quarter: 2006Q2

REPORT INFORMATION
  Report Type: 
  Country: None (occurrence: None)
  Receive Date: 20060627
  Receipt Date: 20060425
  Transmission Date: 20061013
  Serious: No
  Sender: FDA-Public Use
  Company Number: SP00841

PATIENT
  Age: 56 Year
  Sex: Female

DRUGS (3)
  1. XIFAXAN [Suspect]
     Indication: POUCHITIS
     Dosage: 200 MG/2 TABLETS/TID,ORAL
     Route: 048
     Dates: start: 20060421
  2. XIFAXAN [Suspect]
     Indication: POUCHITIS
     Dosage: 2 TABLETS/QD,ORAL
     Route: 048
     Dates: start: 20051205
  3. CIPROFLOXACIN HCL [Suspect]
     Indication: POUCHITIS
     Dates: start: 20050901

REACTIONS (4)
  - MICTURITION URGENCY [None]
  - PAIN IN EXTREMITY [None]
  - TENDONITIS [None]
  - URINARY INCONTINENCE [None]
